FAERS Safety Report 15746540 (Version 2)
Quarter: 2019Q1

REPORT INFORMATION
  Report Type: Spontaneous
  Country: FI (occurrence: FI)
  Receive Date: 20181220
  Receipt Date: 20190110
  Transmission Date: 20190417
  Serious: Yes (Other)
  Sender: FDA-Public Use
  Company Number: FI-JNJFOC-20181215903

PATIENT
  Age: 42 Year
  Sex: Female

DRUGS (8)
  1. PREDNISOLONE. [Concomitant]
     Active Substance: PREDNISOLONE
     Route: 065
     Dates: start: 20180615
  2. ENTOCORT [Concomitant]
     Active Substance: BUDESONIDE
     Route: 065
     Dates: start: 2018, end: 2018
  3. METOJECT [Concomitant]
     Active Substance: METHOTREXATE SODIUM
     Route: 065
     Dates: start: 2018
  4. COLIFOAM [Concomitant]
     Active Substance: HYDROCORTISONE
     Route: 065
     Dates: start: 2018, end: 2018
  5. FOLIC ACID. [Concomitant]
     Active Substance: FOLIC ACID
     Route: 065
     Dates: start: 2018
  6. REMICADE [Suspect]
     Active Substance: INFLIXIMAB
     Indication: COLITIS ULCERATIVE
     Route: 042
     Dates: start: 20180109
  7. REMICADE [Suspect]
     Active Substance: INFLIXIMAB
     Indication: COLITIS ULCERATIVE
     Route: 042
     Dates: start: 201809, end: 20181122
  8. PREDNISOLONE. [Concomitant]
     Active Substance: PREDNISOLONE
     Route: 065
     Dates: start: 20180611, end: 20180614

REACTIONS (7)
  - Product use issue [Unknown]
  - Colitis ulcerative [Recovering/Resolving]
  - Systemic lupus erythematosus [Recovering/Resolving]
  - Drug specific antibody present [Unknown]
  - Off label use [Unknown]
  - Drug level below therapeutic [Unknown]
  - Lown-Ganong-Levine syndrome [Unknown]

NARRATIVE: CASE EVENT DATE: 20180530
